FAERS Safety Report 24701700 (Version 1)
Quarter: 2024Q4

REPORT INFORMATION
  Report Type: Report from Study
  Country: CA (occurrence: CA)
  Receive Date: 20241205
  Receipt Date: 20241205
  Transmission Date: 20250115
  Serious: Yes (Other)
  Sender: TAKEDA
  Company Number: CA-TAKEDA-2023TUS122413

PATIENT
  Age: 66 Year
  Sex: Female

DRUGS (2)
  1. HUMAN IMMUNOGLOBULIN G [Suspect]
     Active Substance: HUMAN IMMUNOGLOBULIN G
     Indication: Secondary immunodeficiency
     Dosage: UNK UNK, 1/WEEK
     Dates: start: 20231120
  2. HUMAN IMMUNOGLOBULIN G [Suspect]
     Active Substance: HUMAN IMMUNOGLOBULIN G
     Dosage: 5 GRAM, 1/WEEK

REACTIONS (7)
  - Neoplasm malignant [Unknown]
  - Family stress [Not Recovered/Not Resolved]
  - Poor quality sleep [Unknown]
  - Frustration tolerance decreased [Unknown]
  - Product distribution issue [Unknown]
  - Feeling abnormal [Unknown]
  - Blood pressure increased [Unknown]

NARRATIVE: CASE EVENT DATE: 20240108
